FAERS Safety Report 12089196 (Version 1)
Quarter: 2016Q1

REPORT INFORMATION
  Report Type: Spontaneous
  Country: US (occurrence: None)
  Receive Date: 20160217
  Receipt Date: 20160217
  Transmission Date: 20160526
  Serious: Yes (Other)
  Sender: FDA-Public Use
  Company Number: None

PATIENT
  Age: 63 Year
  Sex: Male

DRUGS (8)
  1. ASPRIN [Concomitant]
     Active Substance: ASPIRIN
  2. ONGLYZA [Concomitant]
     Active Substance: SAXAGLIPTIN HYDROCHLORIDE
  3. PROAIR INHALER [Concomitant]
  4. AVAPRO (IRSBERTIAN) [Concomitant]
  5. INVOKANA [Suspect]
     Active Substance: CANAGLIFLOZIN
     Indication: DRUG THERAPY
     Dosage: 1 /100MG PILL ONCE DAILY TAKEN BY MOUTH
     Route: 048
     Dates: start: 20160214, end: 20160214
  6. ASTELINE [Concomitant]
  7. VPAP MACHINE [Concomitant]
  8. GLIMEPIRIDE. [Concomitant]
     Active Substance: GLIMEPIRIDE

REACTIONS (8)
  - Pollakiuria [None]
  - Blood glucose increased [None]
  - Hypothyroidism [None]
  - Headache [None]
  - Pneumonia [None]
  - Vision blurred [None]
  - Insomnia [None]
  - Arthralgia [None]

NARRATIVE: CASE EVENT DATE: 20160214
